FAERS Safety Report 16441620 (Version 1)
Quarter: 2019Q2

REPORT INFORMATION
  Report Type: Spontaneous
  Country: GB (occurrence: GB)
  Receive Date: 20190617
  Receipt Date: 20190617
  Transmission Date: 20190711
  Serious: Yes (Other)
  Sender: FDA-Public Use
  Company Number: GB-MYLANLABS-2019M1056659

PATIENT
  Age: 70 Year
  Sex: Female

DRUGS (2)
  1. LETROZOLE. [Suspect]
     Active Substance: LETROZOLE
     Indication: OESTROGEN RECEPTOR POSITIVE BREAST CANCER
     Dosage: UNK
     Dates: start: 201706
  2. PALBOCICLIB [Suspect]
     Active Substance: PALBOCICLIB
     Indication: OESTROGEN RECEPTOR POSITIVE BREAST CANCER
     Dosage: 125 MILLIGRAM, CYCLE (125 MG, CYCLIC)
     Dates: start: 201706

REACTIONS (8)
  - Lower respiratory tract infection [Unknown]
  - Musculoskeletal chest pain [Unknown]
  - Neutropenia [Unknown]
  - Nausea [Unknown]
  - Wheezing [Unknown]
  - Diarrhoea [Unknown]
  - Mucosal inflammation [Unknown]
  - Asthma [Recovered/Resolved]
